FAERS Safety Report 9653271 (Version 1)
Quarter: 2013Q4

REPORT INFORMATION
  Report Type: Spontaneous
  Country: US (occurrence: None)
  Receive Date: 20131028
  Receipt Date: 20131028
  Transmission Date: 20140711
  Serious: Yes (Other)
  Sender: FDA-Public Use
  Company Number: None

PATIENT
  Age: 66 Year
  Sex: Female
  Weight: 56.7 kg

DRUGS (1)
  1. CYMBALTA [Suspect]
     Indication: SMALL FIBRE NEUROPATHY
     Route: 048

REACTIONS (10)
  - Blood pressure increased [None]
  - Somnolence [None]
  - Yawning [None]
  - Feeling abnormal [None]
  - Disturbance in attention [None]
  - Somnolence [None]
  - Fatigue [None]
  - Sluggishness [None]
  - Intraocular pressure increased [None]
  - Drug withdrawal syndrome [None]
